FAERS Safety Report 9779976 (Version 2)
Quarter: 2014Q2

REPORT INFORMATION
  Report Type: Report from Study
  Country: US (occurrence: US)
  Receive Date: 20131223
  Receipt Date: 20140404
  Transmission Date: 20141212
  Serious: Yes (Hospitalization)
  Sender: FDA-Public Use
  Company Number: US-ABBVIE-13P-163-1180865-00

PATIENT
  Sex: Male
  Weight: 167.98 kg

DRUGS (12)
  1. HUMIRA [Suspect]
     Indication: PSORIATIC ARTHROPATHY
     Route: 058
     Dates: start: 20100219
  2. HUMIRA [Suspect]
     Route: 058
     Dates: start: 20130511
  3. METFORMIN [Concomitant]
     Indication: DIABETES MELLITUS
  4. GLYBURIDE [Concomitant]
     Indication: DIABETES MELLITUS
  5. LISINOPRIL [Concomitant]
     Indication: HYPERTENSION
  6. ATORVASTATIN [Concomitant]
     Indication: BLOOD CHOLESTEROL INCREASED
  7. CLOBEX [Concomitant]
     Indication: PSORIASIS
  8. VITAMIN A + D [Concomitant]
     Indication: PSORIASIS
  9. VITAMIN C [Concomitant]
     Indication: VITAMIN SUPPLEMENTATION
  10. VITAMIN D [Concomitant]
     Indication: VITAMIN SUPPLEMENTATION
  11. OMEGA 369 [Concomitant]
     Indication: CARDIAC DISORDER
  12. OMEGA 369 [Concomitant]
     Indication: PRODUCT USED FOR UNKNOWN INDICATION

REACTIONS (13)
  - Oxygen saturation decreased [Recovered/Resolved]
  - Asthma [Recovered/Resolved]
  - Pain in extremity [Not Recovered/Not Resolved]
  - Grip strength decreased [Not Recovered/Not Resolved]
  - Gait disturbance [Not Recovered/Not Resolved]
  - Dyspnoea [Recovered/Resolved]
  - Sneezing [Recovered/Resolved with Sequelae]
  - Cough [Recovered/Resolved]
  - Respiration abnormal [Recovered/Resolved]
  - Wheezing [Recovered/Resolved]
  - Rheumatoid arthritis [Not Recovered/Not Resolved]
  - Asthma [Not Recovered/Not Resolved]
  - Psoriatic arthropathy [Unknown]
